FAERS Safety Report 10463653 (Version 1)
Quarter: 2014Q3

REPORT INFORMATION
  Report Type: Spontaneous
  Country: DE (occurrence: DE)
  Receive Date: 20140919
  Receipt Date: 20140919
  Transmission Date: 20150326
  Serious: Yes (Life-Threatening, Hospitalization, Other)
  Sender: FDA-Public Use
  Company Number: DE-JNJFOC-20140905891

PATIENT
  Age: 51 Year
  Sex: Female

DRUGS (3)
  1. REOPRO [Suspect]
     Active Substance: ABCIXIMAB
     Indication: PRODUCT USED FOR UNKNOWN INDICATION
     Route: 042
     Dates: start: 20140721
  2. ASA [Suspect]
     Active Substance: ASPIRIN
     Indication: PRODUCT USED FOR UNKNOWN INDICATION
     Route: 065
  3. PRASUGREL [Suspect]
     Active Substance: PRASUGREL
     Indication: PRODUCT USED FOR UNKNOWN INDICATION
     Route: 065

REACTIONS (2)
  - Cardiac ventricular thrombosis [Recovered/Resolved]
  - Haemorrhage intracranial [Not Recovered/Not Resolved]

NARRATIVE: CASE EVENT DATE: 20140723
